FAERS Safety Report 19659880 (Version 1)
Quarter: 2021Q3

REPORT INFORMATION
  Report Type: Spontaneous
  Country: US (occurrence: US)
  Receive Date: 20210804
  Receipt Date: 20210804
  Transmission Date: 20211014
  Serious: Yes (Other)
  Sender: FDA-Public Use
  Company Number: None

PATIENT
  Age: 32 Year
  Sex: Female
  Weight: 75.3 kg

DRUGS (9)
  1. DAILY WOMEN^S MULTIVITAMIN [Concomitant]
  2. GABA SUPPLEMENTS [Concomitant]
  3. MAGNESIUM [Concomitant]
     Active Substance: MAGNESIUM
  4. INOSITOL [Concomitant]
     Active Substance: INOSITOL
  5. CREATINE [Concomitant]
     Active Substance: CREATINE
  6. MCT OIL [Concomitant]
  7. MIRENA [Suspect]
     Active Substance: LEVONORGESTREL
     Dates: start: 20200901, end: 20210802
  8. SODIUM?POTASSIUM ELECTROLYTE SUPPLEMENT [Concomitant]
  9. COLLAGEN PEPTIDES [Concomitant]

REACTIONS (19)
  - Palpitations [None]
  - Insomnia [None]
  - Fungal infection [None]
  - Bacterial vaginosis [None]
  - Impaired work ability [None]
  - Panic attack [None]
  - Crying [None]
  - Fatigue [None]
  - Weight increased [None]
  - Fluid retention [None]
  - Self esteem decreased [None]
  - Mental disorder [None]
  - Menstrual disorder [None]
  - Depressed level of consciousness [None]
  - Constipation [None]
  - Acne [None]
  - Gastrointestinal disorder [None]
  - Dizziness [None]
  - Depression [None]

NARRATIVE: CASE EVENT DATE: 20201001
